FAERS Safety Report 23681891 (Version 1)
Quarter: 2024Q1

REPORT INFORMATION
  Report Type: Spontaneous
  Country: US (occurrence: None)
  Receive Date: 20240328
  Receipt Date: 20240328
  Transmission Date: 20240410
  Serious: No
  Sender: FDA-Public Use
  Company Number: 2024A063632

PATIENT
  Sex: Female

DRUGS (1)
  1. BREZTRI [Suspect]
     Active Substance: BUDESONIDE\FORMOTEROL\GLYCOPYRROLATE
     Route: 055

REACTIONS (6)
  - Chest pain [Unknown]
  - Cardiac disorder [Unknown]
  - Cough [Unknown]
  - Nasopharyngitis [Unknown]
  - Device use issue [Unknown]
  - Device delivery system issue [Unknown]
